FAERS Safety Report 16238405 (Version 2)
Quarter: 2019Q2

REPORT INFORMATION
  Report Type: Report from Study
  Country: GB (occurrence: GB)
  Receive Date: 20190425
  Receipt Date: 20190507
  Transmission Date: 20190711
  Serious: Yes (Other)
  Sender: FDA-Public Use
  Company Number: GB-AMGEN-GBRSL2019061329

PATIENT
  Age: 22 Year
  Sex: Female

DRUGS (1)
  1. AMGEVITA [Suspect]
     Active Substance: ADALIMUMAB
     Indication: HIDRADENITIS
     Dosage: 40 MILLIGRAM, QWK
     Route: 065
     Dates: start: 20190404

REACTIONS (6)
  - Rash papular [Unknown]
  - Abdominal distension [Unknown]
  - Rash pruritic [Unknown]
  - Feeling abnormal [Unknown]
  - Eye swelling [Recovered/Resolved]
  - Nausea [Unknown]

NARRATIVE: CASE EVENT DATE: 201904
